FAERS Safety Report 8449344-7 (Version None)
Quarter: 2012Q2

REPORT INFORMATION
  Report Type: 
  Country: None (occurrence: None)
  Receive Date: 20120619
  Receipt Date: 20120612
  Transmission Date: 20120825
  Serious: Yes (Hospitalization, Other)
  Sender: FDA-Public Use
  Company Number: FR-PFIZER INC-2012140658

PATIENT
  Age: 77 Year
  Sex: Male

DRUGS (10)
  1. INDAPAMIDE [Concomitant]
     Dosage: 1.5
  2. ACETAMINOPHEN [Concomitant]
     Dosage: UNK
  3. METFORMIN HCL [Concomitant]
     Dosage: UNK
  4. TADENAN [Concomitant]
     Dosage: UNK
  5. ALLOPURINOL [Concomitant]
     Dosage: UNK
  6. ATORVASTATIN [Suspect]
     Dosage: 40 MG, 1X/DAY
     Route: 048
     Dates: end: 20120430
  7. PLAVIX [Concomitant]
     Dosage: 75
  8. EXFORGE [Concomitant]
     Dosage: 10/160
  9. FLECAINIDE ACETATE [Concomitant]
     Dosage: 200
  10. ATORVASTATIN [Suspect]
     Dosage: 10 MG, UNK
     Route: 048
     Dates: start: 20070701

REACTIONS (5)
  - ERYSIPELAS [None]
  - ASPARTATE AMINOTRANSFERASE INCREASED [None]
  - SKIN ULCER [None]
  - RHABDOMYOLYSIS [None]
  - DEEP VEIN THROMBOSIS [None]
